FAERS Safety Report 9251619 (Version 1)
Quarter: 2013Q1

REPORT INFORMATION
  Report Type: Spontaneous
  Country: US (occurrence: None)
  Receive Date: 20130305
  Receipt Date: 20130305
  Transmission Date: 20140127
  Serious: Yes (Hospitalization, Other)
  Sender: FDA-Public Use
  Company Number: 163-21880-12090113

PATIENT
  Age: 82 Year
  Sex: Male
  Weight: 82.56 kg

DRUGS (2)
  1. REVLIMID [Suspect]
     Indication: PLASMA CELL MYELOMA
     Dosage: 21 IN 28 D
     Route: 048
     Dates: start: 20110712
  2. DECADRON (DEXAMETHASONE) [Suspect]

REACTIONS (2)
  - Thrombocytopenia [None]
  - Pancytopenia [None]
